FAERS Safety Report 17528130 (Version 2)
Quarter: 2020Q2

REPORT INFORMATION
  Report Type: Report from Study
  Country: US (occurrence: US)
  Receive Date: 20200311
  Receipt Date: 20200508
  Transmission Date: 20200713
  Serious: Yes (Hospitalization)
  Sender: FDA-Public Use
  Company Number: US-BAYER-2020-042442

PATIENT
  Age: 14 Year
  Sex: Male

DRUGS (1)
  1. NEXAVAR [Suspect]
     Active Substance: SORAFENIB
     Indication: ACUTE MYELOID LEUKAEMIA
     Dosage: 200 MG, HS
     Route: 048
     Dates: start: 20200207

REACTIONS (8)
  - Rash maculo-papular [None]
  - Product administered to patient of inappropriate age [None]
  - Bone marrow transplant [Recovered/Resolved]
  - Skin disorder [None]
  - Rash [None]
  - Off label use [None]
  - Pain in extremity [None]
  - Product use in unapproved indication [None]

NARRATIVE: CASE EVENT DATE: 20200207
